FAERS Safety Report 13909880 (Version 1)
Quarter: 2017Q3

REPORT INFORMATION
  Report Type: Spontaneous
  Country: US (occurrence: US)
  Receive Date: 20170828
  Receipt Date: 20170828
  Transmission Date: 20171127
  Serious: No
  Sender: FDA-Public Use
  Company Number: US-ENDO PHARMACEUTICALS INC-2016-007195

PATIENT
  Age: 43 Year
  Sex: Female

DRUGS (7)
  1. PREDNISONE TABLETS [Suspect]
     Active Substance: PREDNISONE
     Dosage: 10 MG, UNKNOWN
     Route: 065
  2. PREDNISONE TABLETS [Suspect]
     Active Substance: PREDNISONE
     Dosage: 40 MG, UNKNOWN
     Route: 065
  3. PREDNISONE TABLETS [Suspect]
     Active Substance: PREDNISONE
     Dosage: 40 MG, UNKNOWN
     Route: 065
  4. PREDNISONE TABLETS [Suspect]
     Active Substance: PREDNISONE
     Dosage: 40 MG, UNKNOWN
     Route: 065
  5. PREDNISONE TABLETS [Suspect]
     Active Substance: PREDNISONE
     Dosage: 30 MG, UNKNOWN
     Route: 065
  6. PREDNISONE TABLETS [Suspect]
     Active Substance: PREDNISONE
     Dosage: 20 MG, UNKNOWN
     Route: 065
  7. PREDNISONE TABLETS [Suspect]
     Active Substance: PREDNISONE
     Indication: LARYNGITIS
     Dosage: UNK UNK, UNK
     Route: 065

REACTIONS (7)
  - Hypoaesthesia [Unknown]
  - Gait inability [Unknown]
  - Therapeutic response unexpected [Unknown]
  - Drug ineffective [Unknown]
  - Paraesthesia [Unknown]
  - Burning sensation [Unknown]
  - Off label use [Unknown]
